FAERS Safety Report 7754100-9 (Version None)
Quarter: 2011Q3

REPORT INFORMATION
  Report Type: 
  Country: None (occurrence: None)
  Receive Date: 20110915
  Receipt Date: 20110906
  Transmission Date: 20111222
  Serious: Yes (Hospitalization)
  Sender: FDA-Public Use
  Company Number: US-ASTRAZENECA-2010SE37902

PATIENT
  Age: 56 Year
  Sex: Female
  Weight: 63.5 kg

DRUGS (11)
  1. FIORICET [Concomitant]
  2. SEROQUEL [Suspect]
     Indication: ANXIETY
     Dosage: 200 AND ONE AND A HALF MG IN THE MORNING AND ANOTHER 200 AND ONE AND A HALF MG IN THE EVENING.
     Route: 048
     Dates: start: 20090101
  3. TEMAZEPAM [Concomitant]
  4. PROZAC [Concomitant]
  5. SEROQUEL [Suspect]
     Indication: BIPOLAR I DISORDER
     Dosage: 200 AND ONE AND A HALF MG IN THE MORNING AND ANOTHER 200 AND ONE AND A HALF MG IN THE EVENING.
     Route: 048
     Dates: start: 20090101
  6. ATIVAN [Concomitant]
  7. TRAMADOL HCL [Concomitant]
  8. NADOLOL [Concomitant]
  9. OXYCODONE HCL [Concomitant]
  10. BACLOFIN [Concomitant]
  11. PEPCID [Concomitant]

REACTIONS (9)
  - WRONG TECHNIQUE IN DRUG USAGE PROCESS [None]
  - STRESS [None]
  - GASTRIC DISORDER [None]
  - DEHYDRATION [None]
  - HALLUCINATION [None]
  - AMNESIA [None]
  - DRUG DOSE OMISSION [None]
  - INSOMNIA [None]
  - DYSPHEMIA [None]
